FAERS Safety Report 6385226-2 (Version None)
Quarter: 2009Q4

REPORT INFORMATION
  Report Type: 
  Country: None (occurrence: None)
  Receive Date: 20091002
  Receipt Date: 20090304
  Transmission Date: 20100525
  Serious: Yes (Other)
  Sender: FDA-Public Use
  Company Number: US-ASTRAZENECA-2005UW12083

PATIENT
  Age: 65 Year
  Sex: Female
  Weight: 63.5 kg

DRUGS (4)
  1. ARIMIDEX [Suspect]
     Indication: BREAST CANCER
     Route: 048
     Dates: start: 20050701
  2. CALCIUM [Concomitant]
  3. LOVAZA [Concomitant]
  4. VITAMINS [Concomitant]

REACTIONS (12)
  - ASTHENIA [None]
  - BLOOD CHOLESTEROL INCREASED [None]
  - CATARACT [None]
  - CYST [None]
  - DIARRHOEA [None]
  - DRY EYE [None]
  - DRY MOUTH [None]
  - GINGIVITIS [None]
  - MUSCULOSKELETAL STIFFNESS [None]
  - NAIL DISORDER [None]
  - OSTEOPENIA [None]
  - VAGINAL HAEMORRHAGE [None]
